FAERS Safety Report 4598041-7 (Version None)
Quarter: 2005Q1

REPORT INFORMATION
  Report Type: 
  Country: None (occurrence: None)
  Receive Date: 20050207
  Receipt Date: 20040420
  Transmission Date: 20050727
  Serious: Yes (Hospitalization)
  Sender: FDA-Public Use
  Company Number: MEDI-0001725

PATIENT
  Age: 65 Year
  Sex: Male
  Weight: 65.7716 kg

DRUGS (7)
  1. ETHYOL [Suspect]
     Indication: RADIOTHERAPY
     Dosage: 500 MG, SUBCUTANEOUS
     Route: 058
     Dates: start: 20040401, end: 20040413
  2. ETHYOL [Suspect]
     Indication: RADIOTHERAPY
     Dosage: 500 MG, SUBCUTANEOUS
     Route: 058
     Dates: end: 20040419
  3. GLUCOTROL [Concomitant]
  4. MARINOL (DRONABINAOL) [Concomitant]
  5. CARBOPLATIN [Concomitant]
  6. TAXOL [Concomitant]
  7. RADIATION THERAPY [Concomitant]

REACTIONS (8)
  - CARDIAC ENZYMES INCREASED [None]
  - DYSPNOEA [None]
  - FLUSHING [None]
  - HYPOTENSION [None]
  - MYOCARDIAL INFARCTION [None]
  - PYREXIA [None]
  - RASH [None]
  - TROPONIN INCREASED [None]
